FAERS Safety Report 24102440 (Version 1)
Quarter: 2024Q3

REPORT INFORMATION
  Report Type: Report from Study
  Country: US (occurrence: None)
  Receive Date: 20240717
  Receipt Date: 20240717
  Transmission Date: 20241017
  Serious: Yes (Hospitalization)
  Sender: ASTRAZENECA
  Company Number: 2019SF03635

PATIENT
  Age: 76 Year
  Sex: Female
  Weight: 85.7 kg

DRUGS (20)
  1. CALQUENCE [Suspect]
     Active Substance: ACALABRUTINIB
     Indication: Mantle cell lymphoma
     Route: 048
     Dates: start: 20190703, end: 20190717
  2. OMEPRAZOLE [Suspect]
     Active Substance: OMEPRAZOLE
     Route: 048
  3. LOSRATAN POTASSIUM [Concomitant]
  4. ASPIRIN [Concomitant]
     Active Substance: ASPIRIN
  5. TYLENOL [Concomitant]
     Active Substance: ACETAMINOPHEN
  6. ACYCLOVIR [Concomitant]
     Active Substance: ACYCLOVIR
  7. ALBUTEROL [Concomitant]
     Active Substance: ALBUTEROL
  8. LIPITOR [Concomitant]
     Active Substance: ATORVASTATIN CALCIUM
  9. CALCIUM [Concomitant]
     Active Substance: CALCIUM
  10. CARVEDILOL [Concomitant]
     Active Substance: CARVEDILOL
  11. FLONASE [Concomitant]
     Active Substance: FLUTICASONE PROPIONATE
  12. ADVAIR DISKUS [Concomitant]
     Active Substance: FLUTICASONE PROPIONATE\SALMETEROL XINAFOATE
  13. GLYBURIDE [Concomitant]
     Active Substance: GLYBURIDE
  14. KEPPRA [Concomitant]
     Active Substance: LEVETIRACETAM
  15. METFORMIN [Concomitant]
     Active Substance: METFORMIN HYDROCHLORIDE
  16. REMERON [Concomitant]
     Active Substance: MIRTAZAPINE
  17. GLYCOLAX [Concomitant]
     Active Substance: POLYETHYLENE GLYCOL 3350
  18. SPIRIVA RESPIMAT [Concomitant]
     Active Substance: TIOTROPIUM BROMIDE
  19. SENOKOT [Concomitant]
     Active Substance: SENNOSIDES
  20. ALLOPURINOL [Concomitant]
     Active Substance: ALLOPURINOL

REACTIONS (3)
  - Atrial fibrillation [Not Recovered/Not Resolved]
  - Cardiac failure [Not Recovered/Not Resolved]
  - Pneumonia [Not Recovered/Not Resolved]

NARRATIVE: CASE EVENT DATE: 20190703
